FAERS Safety Report 4833703-5 (Version None)
Quarter: 2005Q4

REPORT INFORMATION
  Report Type: 
  Country: None (occurrence: None)
  Receive Date: 20051114
  Receipt Date: 20051101
  Transmission Date: 20060501
  Serious: Yes (Death, Other)
  Sender: FDA-Public Use
  Company Number: 2005138368

PATIENT
  Sex: Male

DRUGS (3)
  1. LISTERINE ANTISEPTIC MOUTHWASH (MENTHOL, METHYL SALICYLATE, EUCALYPTOL [Suspect]
     Indication: ALCOHOLISM
     Dosage: 1.5 LITERS DAILY, ORAL
     Route: 048
     Dates: start: 19700101, end: 19740119
  2. DRUG, UNSPECIFIED (DRUG, UNSPECIFIED) [Suspect]
     Dates: end: 19740119
  3. ALL OTHER THERAPEUTIC PRODUCTS (ALL OTHER THERAPEUTIC PRODUCTS) [Concomitant]

REACTIONS (1)
  - INTENTIONAL DRUG MISUSE [None]
